FAERS Safety Report 5241281-4 (Version None)
Quarter: 2007Q1

REPORT INFORMATION
  Report Type: 
  Country: None (occurrence: None)
  Receive Date: 20070215
  Receipt Date: 20070215
  Transmission Date: 20070707
  Serious: Yes (Other)
  Sender: FDA-Public Use
  Company Number: None

PATIENT
  Age: 45 Year
  Sex: Male
  Weight: 90.7194 kg

DRUGS (2)
  1. REMERON [Suspect]
     Indication: DEPRESSIVE SYMPTOM
     Dosage: 15 MG Q HS PO
     Route: 048
     Dates: start: 20061025, end: 20061101
  2. REMERON [Suspect]
     Indication: SLEEP DISORDER
     Dosage: 15 MG Q HS PO
     Route: 048
     Dates: start: 20061025, end: 20061101

REACTIONS (2)
  - AGGRESSION [None]
  - HOMICIDAL IDEATION [None]
